FAERS Safety Report 13006381 (Version 2)
Quarter: 2016Q4

REPORT INFORMATION
  Report Type: Spontaneous
  Country: CH (occurrence: CH)
  Receive Date: 20161207
  Receipt Date: 20161230
  Transmission Date: 20170207
  Serious: Yes (Death, Hospitalization)
  Sender: FDA-Public Use
  Company Number: CH-UNITED THERAPEUTICS-UNT-2016-018425

PATIENT
  Age: 22 Year
  Sex: Male

DRUGS (1)
  1. REMODULIN [Suspect]
     Active Substance: TREPROSTINIL
     Indication: PULMONARY ARTERIAL HYPERTENSION
     Dosage: UNK
     Route: 041
     Dates: start: 20110101

REACTIONS (4)
  - Systemic inflammatory response syndrome [Unknown]
  - Lung transplant [Unknown]
  - Multiple organ dysfunction syndrome [Fatal]
  - Product use issue [Unknown]

NARRATIVE: CASE EVENT DATE: 20140324
